FAERS Safety Report 4656731-1 (Version None)
Quarter: 2005Q2

REPORT INFORMATION
  Report Type: 
  Country: None (occurrence: None)
  Receive Date: 20050509
  Receipt Date: 20050503
  Transmission Date: 20051028
  Serious: Yes (Other)
  Sender: FDA-Public Use
  Company Number: PHNU2005DE01854

PATIENT
  Sex: Male

DRUGS (10)
  1. DIOVAN [Suspect]
     Indication: HYPERTENSION
     Dosage: UNK, UNK
     Dates: start: 20040914, end: 20041216
  2. EBRANTIL [Concomitant]
     Indication: HYPERTENSION
     Dosage: 180 MG/D
  3. METOPROLOL TARTRATE [Concomitant]
     Indication: HYPERTENSION
     Dosage: UNK, UNK
     Dates: start: 20040914, end: 20041215
  4. METOPROLOL TARTRATE [Concomitant]
     Dosage: 200 MG/D
     Dates: start: 20041216
  5. MOXONIDINE [Concomitant]
     Dosage: UNK, UNK
     Dates: start: 20040914, end: 20041215
  6. MOXONIDINE [Concomitant]
     Dosage: 0.8 MG/D
     Dates: start: 20041216
  7. FELODIPINE [Concomitant]
     Indication: HYPERTENSION
     Dosage: 10 MG/D
     Dates: start: 20040914, end: 20041215
  8. FELODIPINE [Concomitant]
     Dosage: 15 MG/D
     Dates: start: 20041216
  9. RAMIPRIL [Concomitant]
     Dosage: 10 MG/D
     Dates: start: 20040914
  10. AMIODARONE HCL [Concomitant]
     Indication: HYPERTENSION
     Dosage: 200 MG/D
     Dates: start: 20041216

REACTIONS (2)
  - BLOOD PRESSURE INCREASED [None]
  - PARADOXICAL DRUG REACTION [None]
